FAERS Safety Report 7501699-3 (Version None)
Quarter: 2011Q2

REPORT INFORMATION
  Report Type: 
  Country: None (occurrence: None)
  Receive Date: 20110525
  Receipt Date: 20110516
  Transmission Date: 20111010
  Serious: Yes (Hospitalization)
  Sender: FDA-Public Use
  Company Number: GB-AMGEN-GBRCT2011010968

PATIENT
  Age: 7 Year
  Sex: Female
  Weight: 20.3 kg

DRUGS (6)
  1. TRIAMCINOLONE ACETONIDE [Concomitant]
     Dosage: UNK
     Route: 014
     Dates: start: 20040101
  2. IBUPROFEN [Concomitant]
     Dosage: 200 MG, 3X/DAY
     Route: 048
     Dates: start: 20030301
  3. PREDNISOLONE [Concomitant]
     Dosage: 10 MG, ALTERNATE DAY
     Route: 048
     Dates: start: 20031201
  4. ETANERCEPT [Suspect]
     Indication: POLYARTHRITIS
     Dosage: 7.5 MG, 2 TIMES/WK
     Route: 058
     Dates: start: 20030904
  5. PREDNISOLONE [Concomitant]
     Dosage: 10 MG, 1X/DAY
     Route: 048
     Dates: start: 20031101
  6. PREDNISOLONE [Concomitant]
     Dosage: 5 MG, 1X/DAY
     Route: 048
     Dates: start: 20040101

REACTIONS (1)
  - JUVENILE ARTHRITIS [None]
